FAERS Safety Report 5236939-7 (Version None)
Quarter: 2007Q1

REPORT INFORMATION
  Report Type: 
  Country: None (occurrence: None)
  Receive Date: 20061208
  Receipt Date: 20050316
  Transmission Date: 20070707
  Serious: Yes (Other)
  Sender: FDA-Public Use
  Company Number: 2005UW02766

PATIENT
  Sex: Male

DRUGS (1)
  1. CRESTOR [Suspect]

REACTIONS (7)
  - DYSPEPSIA [None]
  - HEART INJURY [None]
  - INFLAMMATION [None]
  - INSOMNIA [None]
  - MUSCLE INJURY [None]
  - MUSCULAR WEAKNESS [None]
  - MYALGIA [None]
